FAERS Safety Report 8512679-3 (Version None)
Quarter: 2012Q3

REPORT INFORMATION
  Report Type: 
  Country: None (occurrence: None)
  Receive Date: 20120716
  Receipt Date: 20120711
  Transmission Date: 20120928
  Serious: Yes (Hospitalization, Disabling)
  Sender: FDA-Public Use
  Company Number: GB-PFIZER INC-2012166068

PATIENT
  Age: 71 Year
  Sex: Female
  Weight: 70 kg

DRUGS (6)
  1. FUROSEMIDE [Concomitant]
     Dosage: UNK
     Route: 048
  2. BENDROFLUMETHIAZIDE [Concomitant]
     Dosage: 2.5 MG, UNK
     Route: 048
  3. LIPITOR [Suspect]
     Indication: BLOOD CHOLESTEROL INCREASED
     Dosage: 40 MG, UNK
     Route: 048
     Dates: start: 20070401, end: 20081201
  4. RAMIPRIL [Concomitant]
     Dosage: 10 MG, UNK
     Route: 048
  5. RAMIPRIL [Concomitant]
     Dosage: 2.5 MG, UNK
     Route: 048
  6. ALENDRONATE SODIUM [Concomitant]
     Dosage: 70 MG, UNK
     Route: 048

REACTIONS (5)
  - MOBILITY DECREASED [None]
  - BRONCHIECTASIS [None]
  - RENAL FAILURE [None]
  - DYSPNOEA [None]
  - MOOD ALTERED [None]
